FAERS Safety Report 19908184 (Version 1)
Quarter: 2021Q4

REPORT INFORMATION
  Report Type: Spontaneous
  Country: US (occurrence: US)
  Receive Date: 20211001
  Receipt Date: 20211001
  Transmission Date: 20220303
  Serious: Yes (Other)
  Sender: FDA-Public Use
  Company Number: US-PFIZER INC-202101258293

PATIENT
  Sex: Male

DRUGS (8)
  1. ALPRAZOLAM [Suspect]
     Active Substance: ALPRAZOLAM
     Dosage: OCCASIONAL USE FOR PAST 5 YEARS
     Route: 045
  2. CLONAZEPAM [Suspect]
     Active Substance: CLONAZEPAM
     Dosage: UNK
  3. MORPHINE SULFATE [Concomitant]
     Active Substance: MORPHINE SULFATE
     Dosage: UNK
  4. HEROIN [Concomitant]
     Active Substance: DIAMORPHINE
     Dosage: 4-10 TIMES DAILY FOR PAST 1.5 YEARS
  5. HEROIN [Concomitant]
     Active Substance: DIAMORPHINE
     Dosage: UNK
     Route: 045
  6. GABAPENTIN [Concomitant]
     Active Substance: GABAPENTIN
     Indication: Back pain
     Dosage: 2400 MG, DAILY FOR PAST 5 YEARS
     Route: 048
  7. GABAPENTIN [Concomitant]
     Active Substance: GABAPENTIN
     Indication: Anxiety disorder
  8. COCAINE [Concomitant]
     Active Substance: COCAINE
     Dosage: UNK

REACTIONS (1)
  - Drug use disorder [Recovering/Resolving]
